FAERS Safety Report 13617643 (Version 4)
Quarter: 2019Q4

REPORT INFORMATION
  Report Type: Spontaneous
  Country: US (occurrence: US)
  Receive Date: 20170606
  Receipt Date: 20191004
  Transmission Date: 20200122
  Serious: Yes (Other)
  Sender: FDA-Public Use
  Company Number: US-SANOFI-AVENTIS-2009SA005575

PATIENT
  Age: 76 Year
  Sex: Male

DRUGS (7)
  1. LANTUS SOLOSTAR [Suspect]
     Active Substance: INSULIN GLARGINE
     Indication: TYPE 2 DIABETES MELLITUS
     Dosage: 24 DF,QD
     Route: 058
     Dates: start: 20010930
  2. LANTUS SOLOSTAR [Suspect]
     Active Substance: INSULIN GLARGINE
     Dosage: 24 DF,QD
     Route: 058
     Dates: start: 20010930
  3. LANTUS SOLOSTAR [Suspect]
     Active Substance: INSULIN GLARGINE
     Dosage: 24 DF,QD
     Route: 058
     Dates: start: 20010930
  4. LANTUS SOLOSTAR [Suspect]
     Active Substance: INSULIN GLARGINE
     Dosage: 25 DF,HS
     Route: 058
     Dates: start: 2016
  5. LANTUS SOLOSTAR [Suspect]
     Active Substance: INSULIN GLARGINE
     Dosage: 24-26 UNITS 1 TIME DAILY
     Route: 065
  6. LANTUS SOLOSTAR [Suspect]
     Active Substance: INSULIN GLARGINE
     Dosage: 24 DF,QD
     Route: 058
     Dates: start: 20010930
  7. LANTUS SOLOSTAR [Suspect]
     Active Substance: INSULIN GLARGINE
     Dosage: 25 DF,HS
     Route: 058
     Dates: start: 2016

REACTIONS (12)
  - Device issue [Unknown]
  - Hypoacusis [Unknown]
  - Medication error [Unknown]
  - Diabetes mellitus inadequate control [Recovered/Resolved]
  - Injection site pain [Unknown]
  - Feeling hot [Unknown]
  - Blood glucose increased [Not Recovered/Not Resolved]
  - Incorrect dose administered by device [Unknown]
  - Condition aggravated [Unknown]
  - Dry eye [Unknown]
  - Drug ineffective [Not Recovered/Not Resolved]
  - Wrong technique in product usage process [Unknown]

NARRATIVE: CASE EVENT DATE: 20091031
